FAERS Safety Report 8701874 (Version 9)
Quarter: 2015Q1

REPORT INFORMATION
  Report Type: Report from Study
  Country: JP (occurrence: JP)
  Receive Date: 20120803
  Receipt Date: 20150202
  Transmission Date: 20150721
  Serious: Yes (Hospitalization, Other)
  Sender: FDA-Public Use
  Company Number: JP-AMGEN-JPNCT2012048333

PATIENT
  Age: 81 Year
  Sex: Male
  Weight: 52 kg

DRUGS (11)
  1. LOCHOL [Concomitant]
     Active Substance: FLUVASTATIN SODIUM
     Dosage: UNK
     Route: 048
  2. ATELEC [Concomitant]
     Active Substance: CILNIDIPINE
     Dosage: UNK
     Route: 048
  3. DARBEPOETIN ALFA - KHK [Suspect]
     Active Substance: DARBEPOETIN ALFA
     Indication: NEPHROGENIC ANAEMIA
     Dosage: 120 MUG, QD
     Route: 058
     Dates: start: 20111124, end: 20140421
  4. BAYASPIRIN [Concomitant]
     Active Substance: ASPIRIN
     Dosage: UNK
     Route: 048
  5. PERSANTIN [Concomitant]
     Active Substance: DIPYRIDAMOLE
     Indication: GLOMERULONEPHRITIS CHRONIC
     Dosage: UNK
     Route: 048
  6. CONIEL [Concomitant]
     Active Substance: BENIDIPINE HYDROCHLORIDE
     Dosage: UNK
     Route: 048
  7. EVIPROSTAT                         /05927901/ [Concomitant]
     Dosage: UNK
     Route: 048
  8. NU-LOTAN [Concomitant]
     Active Substance: LOSARTAN POTASSIUM
     Dosage: 50 MG, QD
     Route: 048
  9. ALOSITOL [Concomitant]
     Active Substance: ALLOPURINOL
     Dosage: UNK
     Route: 048
  10. FERROMIA [Concomitant]
     Active Substance: FERROUS CITRATE
     Dosage: UNK
     Route: 048
  11. KREMEZIN [Concomitant]
     Active Substance: ACTIVATED CHARCOAL
     Indication: GLOMERULONEPHRITIS CHRONIC
     Dosage: UNK
     Route: 048

REACTIONS (6)
  - Renal failure [Recovering/Resolving]
  - Dehydration [Recovered/Resolved]
  - Hypertension [Unknown]
  - Hypertension [Recovering/Resolving]
  - Eczema [Recovered/Resolved]
  - Protein urine present [Recovering/Resolving]

NARRATIVE: CASE EVENT DATE: 20120412
